FAERS Safety Report 5900720-3 (Version None)
Quarter: 2008Q3

REPORT INFORMATION
  Report Type: 
  Country: None (occurrence: None)
  Receive Date: 20080928
  Receipt Date: 20080917
  Transmission Date: 20090109
  Serious: Yes (Hospitalization)
  Sender: FDA-Public Use
  Company Number: US-JNJFOC-20080904065

PATIENT
  Sex: Male
  Weight: 104.33 kg

DRUGS (6)
  1. REMICADE [Suspect]
     Indication: COLITIS ULCERATIVE
     Route: 042
  2. PREDNISONE [Concomitant]
  3. SINGULAIR [Concomitant]
  4. LIALDA [Concomitant]
  5. ACETAMINOPHEN [Concomitant]
     Indication: PREMEDICATION
  6. ALLEGRA [Concomitant]

REACTIONS (6)
  - BACK PAIN [None]
  - DYSPNOEA [None]
  - FLUSHING [None]
  - HEADACHE [None]
  - INFUSION RELATED REACTION [None]
  - PARAESTHESIA [None]
